FAERS Safety Report 5440714-8 (Version None)
Quarter: 2007Q3

REPORT INFORMATION
  Report Type: 
  Country: None (occurrence: None)
  Receive Date: 20070831
  Receipt Date: 20070821
  Transmission Date: 20080115
  Serious: Yes (Other)
  Sender: FDA-Public Use
  Company Number: US-ABBOTT-07P-163-0378773-00

PATIENT
  Age: 31 Year
  Sex: Female

DRUGS (3)
  1. RITONAVIR SOFT GELATIN CAPSULES [Suspect]
     Indication: SYSTEMIC ANTIVIRAL TREATMENT
  2. LAMIVUDINE [Suspect]
     Indication: SYSTEMIC ANTIVIRAL TREATMENT
  3. TENOFOVIR DISOPROXIL FUMARATE [Suspect]
     Indication: SYSTEMIC ANTIVIRAL TREATMENT

REACTIONS (2)
  - ABORTION SPONTANEOUS [None]
  - ECTOPIC PREGNANCY [None]
